FAERS Safety Report 9312682 (Version 2)
Quarter: 2013Q3

REPORT INFORMATION
  Report Type: Spontaneous
  Country: DE (occurrence: DE)
  Receive Date: 20130528
  Receipt Date: 20130702
  Transmission Date: 20140515
  Serious: Yes (Other)
  Sender: FDA-Public Use
  Company Number: DE-ABBOTT-13P-062-1095754-00

PATIENT
  Age: 69 Year
  Sex: Male

DRUGS (3)
  1. TRENANTONE [Suspect]
     Indication: PROSTATE CANCER
     Route: 058
     Dates: start: 20121010
  2. TRENANTONE [Suspect]
     Indication: PROSTATIC SPECIFIC ANTIGEN INCREASED
  3. TRENANTONE [Suspect]
     Indication: RADICAL PROSTATECTOMY

REACTIONS (2)
  - Bladder cancer [Unknown]
  - Hyperuricaemia [Unknown]
